FAERS Safety Report 5049250-4 (Version None)
Quarter: 2006Q2

REPORT INFORMATION
  Report Type: 
  Country: None (occurrence: None)
  Receive Date: 20060601
  Receipt Date: 20060303
  Transmission Date: 20061013
  Serious: No
  Sender: FDA-Public Use
  Company Number: US200603000838

PATIENT
  Age: 58 Year
  Sex: Female

DRUGS (5)
  1. CYMBALTA [Suspect]
     Indication: FIBROMYALGIA
     Dosage: 30 MG, DAILY (1/D)
     Dates: start: 20060101
  2. FLONASE [Concomitant]
  3. ESTROGENS [Concomitant]
  4. EYE DROPS /USA/ (TETRYZOLINE HYDROCHLORIDE) [Concomitant]
  5. SUDAFED 12 HOUR [Concomitant]

REACTIONS (4)
  - ABDOMINAL PAIN LOWER [None]
  - DIARRHOEA [None]
  - FLATULENCE [None]
  - NASOPHARYNGITIS [None]
